FAERS Safety Report 15366536 (Version 1)
Quarter: 2018Q3

REPORT INFORMATION
  Report Type: Spontaneous
  Country: GB (occurrence: GB)
  Receive Date: 20180910
  Receipt Date: 20180910
  Transmission Date: 20181010
  Serious: Yes (Other)
  Sender: FDA-Public Use
  Company Number: GB-MYLANLABS-2018M1065813

PATIENT
  Age: 57 Year
  Sex: Female

DRUGS (9)
  1. MONTELUKAST [Suspect]
     Active Substance: MONTELUKAST SODIUM
     Indication: ASTHMA
     Dosage: UNK, QD
     Route: 065
  2. SALBUTAMOL [Suspect]
     Active Substance: ALBUTEROL
     Indication: ASTHMA
     Dosage: UNK,INHALER, 9?12 PUFFS PER DAY; BEFORE BREATHING RETRAINING
  3. SYMBICORT [Suspect]
     Active Substance: BUDESONIDE\FORMOTEROL FUMARATE DIHYDRATE
     Dosage: UNK, QD,BEFORE BREATH RETRAINING, QD, INHALER
  4. SPIRIVA [Suspect]
     Active Substance: TIOTROPIUM BROMIDE MONOHYDRATE
     Indication: ASTHMA
     Dosage: UNK, QD,ONE PUFF, QD
  5. SALBUTAMOL [Suspect]
     Active Substance: ALBUTEROL
     Dosage: UNK,INHALER, 6 PUFFS PER DAY; AFTER BREATHING RETRAINING
  6. OMEPRAZOLE. [Concomitant]
     Active Substance: OMEPRAZOLE
     Indication: GASTROOESOPHAGEAL REFLUX DISEASE
     Dosage: 10 MG, UNK
     Route: 065
  7. MONTELUKAST [Suspect]
     Active Substance: MONTELUKAST SODIUM
     Dosage: 10 MG, QD,AT NIGHT
     Route: 065
  8. SYMBICORT [Suspect]
     Active Substance: BUDESONIDE\FORMOTEROL FUMARATE DIHYDRATE
     Indication: ASTHMA
     Dosage: UNK, QD,TWO PUFFS, BID, 200/6 TURBOHALER
  9. AVAMYS [Concomitant]
     Active Substance: FLUTICASONE FUROATE
     Indication: SINUSITIS
     Dosage: UNK
     Route: 065

REACTIONS (3)
  - Palpitations [Unknown]
  - Paraesthesia [Recovered/Resolved]
  - Asthma [Unknown]
